FAERS Safety Report 16973135 (Version 5)
Quarter: 2025Q1

REPORT INFORMATION
  Report Type: Spontaneous
  Country: CA (occurrence: None)
  Receive Date: 20191030
  Receipt Date: 20250219
  Transmission Date: 20250409
  Serious: Yes (Other)
  Sender: ORION
  Company Number: CA-ORION CORPORATION ORION PHARMA-TREX2019-1390

PATIENT
  Age: 42 Year
  Sex: Female

DRUGS (16)
  1. METHOTREXATE [Suspect]
     Active Substance: METHOTREXATE
     Indication: Rheumatoid arthritis
     Dates: start: 201912, end: 202009
  2. METHOTREXATE [Suspect]
     Active Substance: METHOTREXATE
     Dates: start: 2000
  3. METHOTREXATE [Suspect]
     Active Substance: METHOTREXATE
     Dates: start: 2000, end: 2002
  4. METHOTREXATE [Suspect]
     Active Substance: METHOTREXATE
     Dates: start: 2004, end: 2009
  5. METHOTREXATE [Suspect]
     Active Substance: METHOTREXATE
     Dates: start: 2010
  6. PREDNISONE [Concomitant]
     Active Substance: PREDNISONE
     Dates: start: 2000, end: 2002
  7. PREDNISONE [Concomitant]
     Active Substance: PREDNISONE
     Dates: start: 2002
  8. PREDNISONE [Concomitant]
     Active Substance: PREDNISONE
     Dates: start: 2004
  9. ARAVA [Concomitant]
     Active Substance: LEFLUNOMIDE
     Dates: start: 201912, end: 202009
  10. XELJANZ [Concomitant]
     Active Substance: TOFACITINIB CITRATE
     Indication: Rheumatoid arthritis
     Dates: start: 20190521, end: 201906
  11. XELJANZ [Concomitant]
     Active Substance: TOFACITINIB CITRATE
     Dates: start: 201906, end: 201906
  12. XELJANZ [Concomitant]
     Active Substance: TOFACITINIB CITRATE
     Dates: start: 201906, end: 2019
  13. HYDROXYCHLOROQUINE SULFATE [Concomitant]
     Active Substance: HYDROXYCHLOROQUINE SULFATE
     Indication: Eye disorder
     Dates: start: 2000, end: 2002
  14. HYDROXYCHLOROQUINE SULFATE [Concomitant]
     Active Substance: HYDROXYCHLOROQUINE SULFATE
     Dates: start: 2002
  15. SULFASALAZINE [Concomitant]
     Active Substance: SULFASALAZINE
  16. ACTEMRA [Concomitant]
     Active Substance: TOCILIZUMAB

REACTIONS (5)
  - Arthropathy [Unknown]
  - Fungal infection [Unknown]
  - Drug ineffective [Unknown]
  - Diarrhoea [Unknown]
  - Vomiting [Unknown]
